FAERS Safety Report 6424744-5 (Version None)
Quarter: 2009Q4

REPORT INFORMATION
  Report Type: 
  Country: None (occurrence: None)
  Receive Date: 20091029
  Receipt Date: 20090706
  Transmission Date: 20100525
  Serious: Yes (Other)
  Sender: FDA-Public Use
  Company Number: 200882USA

PATIENT
  Sex: Male

DRUGS (1)
  1. CLONAZEPAM [Suspect]
     Indication: ANXIETY
     Dosage: 1 MG, ORAL
     Route: 048

REACTIONS (3)
  - DRUG DEPENDENCE [None]
  - FEELING ABNORMAL [None]
  - WITHDRAWAL SYNDROME [None]
